FAERS Safety Report 24088403 (Version 1)
Quarter: 2024Q3

REPORT INFORMATION
  Report Type: Spontaneous
  Country: US (occurrence: US)
  Receive Date: 20240715
  Receipt Date: 20240715
  Transmission Date: 20241017
  Serious: Yes (Other)
  Sender: BEIGENE
  Company Number: US-BEIGENE-BGN-2024-010596

PATIENT

DRUGS (3)
  1. BRUKINSA [Suspect]
     Active Substance: ZANUBRUTINIB
     Indication: Product used for unknown indication
  2. ORGOVYX [Suspect]
     Active Substance: RELUGOLIX
     Indication: Prostate cancer
     Dosage: 360 MILLIGRAM
     Route: 048
     Dates: start: 2023
  3. ORGOVYX [Suspect]
     Active Substance: RELUGOLIX
     Dosage: 120 MILLIGRAM, QD
     Route: 048
     Dates: start: 2023

REACTIONS (7)
  - Electrocardiogram QT prolonged [Recovered/Resolved]
  - Decreased appetite [Unknown]
  - Weight decreased [Unknown]
  - Dizziness [Unknown]
  - Disturbance in attention [Unknown]
  - Fatigue [Unknown]
  - Hot flush [Unknown]
